FAERS Safety Report 12621504 (Version 2)
Quarter: 2016Q4

REPORT INFORMATION
  Report Type: Spontaneous
  Country: CA (occurrence: CA)
  Receive Date: 20160804
  Receipt Date: 20161228
  Transmission Date: 20170207
  Serious: Yes (Other)
  Sender: FDA-Public Use
  Company Number: CA-PFIZER INC-2016360729

PATIENT
  Age: 67 Year
  Sex: Male
  Weight: 54 kg

DRUGS (17)
  1. HYDROMORPHONE [Concomitant]
     Active Substance: HYDROMORPHONE
     Indication: PAIN
     Dosage: 20 MG, UNK
  2. REISHI [Concomitant]
     Active Substance: REISHI
     Indication: NEOPLASM MALIGNANT
     Dosage: 500 MG, 1X/DAY
     Dates: start: 20160401
  3. VITAMIN D3 [Concomitant]
     Active Substance: CHOLECALCIFEROL
     Indication: ROUTINE HEALTH MAINTENANCE
     Dosage: 1 DF, 1X/DAY
     Dates: start: 2004, end: 20160331
  4. ASPIRIN. [Concomitant]
     Active Substance: ASPIRIN
     Indication: ANTICOAGULANT THERAPY
     Dosage: 1 DF, 1X/DAY
     Dates: end: 20160713
  5. FOLIC ACID. [Concomitant]
     Active Substance: FOLIC ACID
     Indication: COELIAC DISEASE
     Dosage: 1 MG, 1X/DAY
     Dates: start: 2013
  6. MELATONIN [Concomitant]
     Active Substance: MELATONIN
     Indication: SLEEP DISORDER
  7. HYDROMORPHONE [Concomitant]
     Active Substance: HYDROMORPHONE
     Dosage: 3 MG, 2X/DAY (IN MORNING, EVENING)
     Dates: start: 20160401
  8. NUTRA SEA OMEGA 3 FISH OIL [Concomitant]
     Indication: SPINAL OSTEOARTHRITIS
  9. VITAMIN C [Concomitant]
     Active Substance: ASCORBIC ACID
     Indication: NEOPLASM MALIGNANT
     Dosage: 1000 MG, 3X/DAY
     Dates: start: 20160401
  10. VITAMIN D3 [Concomitant]
     Active Substance: CHOLECALCIFEROL
     Dosage: 1000 IU, 3X/DAY
     Dates: start: 20160401
  11. MELATONIN [Concomitant]
     Active Substance: MELATONIN
     Indication: ANTIOXIDANT THERAPY
  12. MELATONIN [Concomitant]
     Active Substance: MELATONIN
     Indication: NEOPLASM MALIGNANT
     Dosage: 20 MG, 1X/DAY (AT BEDTIME)
     Dates: start: 20160401
  13. XALKORI [Suspect]
     Active Substance: CRIZOTINIB
     Indication: LUNG CARCINOMA CELL TYPE UNSPECIFIED STAGE IV
     Dosage: 250 MG, 2X/DAY
     Route: 048
     Dates: start: 20160510, end: 20160704
  14. NUTRA SEA OMEGA 3 FISH OIL [Concomitant]
     Indication: ARTHRITIS
     Dosage: 1 DF, 1X/DAY
     Dates: start: 2004
  15. VITAMIN B COMPLEX [Concomitant]
     Active Substance: CYANOCOBALAMIN\DEXPANTHENOL\NIACINAMIDE\PYRIDOXINE HYDROCHLORIDE\RIBOFLAVIN 5^-PHOSPHATE SODIUM\THIAMINE HYDROCHLORIDE\VITAMIN B COMPLEX
     Indication: ROUTINE HEALTH MAINTENANCE
     Dosage: 1 DF, 1X/DAY
     Dates: start: 2004
  16. CALCIUM [Concomitant]
     Active Substance: CALCIUM
     Indication: NEOPLASM MALIGNANT
     Dosage: 650 MG, 3X/DAY
     Dates: start: 20160401
  17. ASPIRIN. [Concomitant]
     Active Substance: ASPIRIN
     Dosage: 162 MG (2X81 MG), 1X/DAY
     Dates: start: 20160714

REACTIONS (5)
  - Nausea [Not Recovered/Not Resolved]
  - Vomiting [Not Recovered/Not Resolved]
  - Dysgeusia [Recovered/Resolved]
  - Atrial fibrillation [Recovered/Resolved]
  - Hypophagia [Not Recovered/Not Resolved]

NARRATIVE: CASE EVENT DATE: 201606
